FAERS Safety Report 5177021-7 (Version None)
Quarter: 2006Q4

REPORT INFORMATION
  Report Type: 
  Country: None (occurrence: None)
  Receive Date: 20061218
  Receipt Date: 20061214
  Transmission Date: 20070319
  Serious: Yes (Other)
  Sender: FDA-Public Use
  Company Number: 5416866

PATIENT
  Sex: Male

DRUGS (3)
  1. COREG [Suspect]
     Indication: DRUG USE FOR UNKNOWN INDICATION
     Dosage: 3.125MG UNKNOWN
     Route: 065
  2. PLAVIX [Concomitant]
  3. XANAX [Concomitant]
     Indication: ANXIETY DISORDER

REACTIONS (9)
  - ANGER [None]
  - ANXIETY [None]
  - CHEST DISCOMFORT [None]
  - CRYING [None]
  - DEPRESSION [None]
  - DISCOMFORT [None]
  - DRUG ABUSER [None]
  - STRESS [None]
  - TREATMENT NONCOMPLIANCE [None]
